FAERS Safety Report 7709255-9 (Version None)
Quarter: 2011Q3

REPORT INFORMATION
  Report Type: 
  Country: None (occurrence: None)
  Receive Date: 20110825
  Receipt Date: 20110824
  Transmission Date: 20111222
  Serious: Yes (Other)
  Sender: FDA-Public Use
  Company Number: US-PFIZER INC-2011196926

PATIENT
  Sex: Male

DRUGS (4)
  1. SPIRIVA [Concomitant]
     Indication: CHRONIC OBSTRUCTIVE PULMONARY DISEASE
     Dosage: 18 UG,DAILY
     Route: 055
  2. CHANTIX [Suspect]
     Dosage: UNK
     Route: 048
     Dates: start: 20080101, end: 20090101
  3. CHANTIX [Suspect]
     Indication: SMOKING CESSATION THERAPY
     Dosage: 0.5 MG, DAILY
     Route: 048
     Dates: start: 20070909
  4. CHANTIX [Suspect]
     Dosage: 0.5 MG, DAILY
     Route: 048
     Dates: start: 20080909

REACTIONS (1)
  - DIPLOPIA [None]
